FAERS Safety Report 21062024 (Version 1)
Quarter: 2022Q3

REPORT INFORMATION
  Report Type: Spontaneous
  Country: JP (occurrence: JP)
  Receive Date: 20220710
  Receipt Date: 20220710
  Transmission Date: 20221027
  Serious: Yes (Other)
  Sender: FDA-Public Use
  Company Number: JP-NOVARTISPH-NVSJ2022JP093517

PATIENT
  Sex: Male

DRUGS (1)
  1. ENTRESTO [Suspect]
     Active Substance: SACUBITRIL\VALSARTAN
     Indication: Hypertension
     Dosage: UNK
     Route: 048

REACTIONS (5)
  - Nephrotic syndrome [Unknown]
  - Protein urine present [Unknown]
  - Blood albumin decreased [Unknown]
  - Oedema peripheral [Unknown]
  - Asthenia [Unknown]
